FAERS Safety Report 8340308-0 (Version None)
Quarter: 2012Q2

REPORT INFORMATION
  Report Type: 
  Country: None (occurrence: None)
  Receive Date: 20120507
  Receipt Date: 20120507
  Transmission Date: 20120825
  Serious: Yes (Hospitalization)
  Sender: FDA-Public Use
  Company Number: None

PATIENT
  Sex: Female
  Weight: 102.05 kg

DRUGS (1)
  1. SULFAMETHOXAZOLE [Suspect]
     Indication: FURUNCLE
     Dosage: |FREQ: 2 TIMES A DAY||ROUTE: ORAL|
     Route: 048
     Dates: start: 20120428, end: 20120503

REACTIONS (11)
  - HEADACHE [None]
  - PYREXIA [None]
  - DRUG INTOLERANCE [None]
  - DECREASED APPETITE [None]
  - MALAISE [None]
  - DIARRHOEA [None]
  - NAUSEA [None]
  - BACK PAIN [None]
  - PAIN [None]
  - BLOOD PRESSURE INCREASED [None]
  - BRAIN OEDEMA [None]
